FAERS Safety Report 22318797 (Version 1)
Quarter: 2023Q2

REPORT INFORMATION
  Report Type: Spontaneous
  Country: CN (occurrence: CN)
  Receive Date: 20230515
  Receipt Date: 20230515
  Transmission Date: 20230722
  Serious: Yes (Hospitalization)
  Sender: FDA-Public Use
  Company Number: CN-002147023-NVSC2023CN109967

PATIENT
  Age: 66 Year
  Sex: Female
  Weight: 49 kg

DRUGS (2)
  1. TAFINLAR [Suspect]
     Active Substance: DABRAFENIB MESYLATE
     Indication: Chemotherapy
     Dosage: 150 MG, QD
     Route: 048
     Dates: start: 20230425, end: 20230427
  2. MEKINIST [Concomitant]
     Active Substance: TRAMETINIB DIMETHYL SULFOXIDE
     Indication: Chemotherapy
     Dosage: 2 MG, QD
     Route: 041
     Dates: start: 20230425, end: 20230427

REACTIONS (2)
  - Drug-induced liver injury [Recovering/Resolving]
  - Pyrexia [Recovering/Resolving]

NARRATIVE: CASE EVENT DATE: 20230425
